FAERS Safety Report 12242351 (Version 3)
Quarter: 2016Q2

REPORT INFORMATION
  Report Type: Spontaneous
  Country: US (occurrence: US)
  Receive Date: 20160406
  Receipt Date: 20160525
  Transmission Date: 20160815
  Serious: Yes (Hospitalization, Disabling, Other)
  Sender: FDA-Public Use
  Company Number: US-JNJFOC-20160326425

PATIENT
  Sex: Male

DRUGS (1)
  1. INVEGA TRINZA [Suspect]
     Active Substance: PALIPERIDONE PALMITATE
     Indication: PRODUCT USED FOR UNKNOWN INDICATION
     Route: 030
     Dates: start: 20151026

REACTIONS (10)
  - Intentional self-injury [Unknown]
  - Irritability [Recovering/Resolving]
  - Abnormal behaviour [Unknown]
  - Mania [Recovering/Resolving]
  - Aggression [Unknown]
  - Drug dose omission [Unknown]
  - Condition aggravated [Recovering/Resolving]
  - Depression [Recovering/Resolving]
  - Hallucination [Recovering/Resolving]
  - Belligerence [Unknown]

NARRATIVE: CASE EVENT DATE: 201601
